FAERS Safety Report 10034929 (Version 2)
Quarter: 2014Q2

REPORT INFORMATION
  Report Type: Spontaneous
  Country: BR (occurrence: BR)
  Receive Date: 20140325
  Receipt Date: 20140423
  Transmission Date: 20141212
  Serious: Yes (Other)
  Sender: FDA-Public Use
  Company Number: BR-ASTRAZENECA-2014SE19245

PATIENT
  Age: 89 Year
  Sex: Male
  Weight: 85 kg

DRUGS (9)
  1. SYMBICORT [Suspect]
     Indication: WHEEZING
     Dosage: 160/4.5 MCG, TWO TIMES A DAY
     Route: 055
     Dates: start: 2013
  2. CRESTOR [Suspect]
     Indication: BLOOD CHOLESTEROL INCREASED
     Route: 048
     Dates: start: 2012
  3. UNSPECIFIED [Suspect]
     Indication: WHEEZING
     Dosage: DAILY
     Route: 055
     Dates: start: 2012, end: 2013
  4. MONOCORDIL [Concomitant]
     Indication: CARDIAC DISORDER
     Dosage: DAILY
     Route: 048
     Dates: start: 2012
  5. LOSARTAN [Concomitant]
     Indication: HYPERTENSION
     Dosage: DAILY
     Route: 048
     Dates: start: 2012
  6. GARDENAL [Concomitant]
     Indication: EPILEPSY
     Dosage: DAILY
     Route: 048
  7. HIDANTAL [Concomitant]
     Indication: EPILEPSY
     Dosage: DAILY
     Route: 048
  8. PURAN T4 [Concomitant]
     Indication: HYPOTHYROIDISM
     Dosage: DAILY
     Route: 048
  9. CAPTOPRIL [Concomitant]
     Indication: HYPERTENSION
     Dosage: DAILY
     Route: 048
     Dates: start: 2012

REACTIONS (3)
  - American trypanosomiasis [Recovered/Resolved]
  - Wheezing [Recovered/Resolved]
  - Gastritis [Not Recovered/Not Resolved]
